FAERS Safety Report 24562509 (Version 1)
Quarter: 2024Q4

REPORT INFORMATION
  Report Type: Spontaneous
  Country: US (occurrence: US)
  Receive Date: 20241029
  Receipt Date: 20241029
  Transmission Date: 20250115
  Serious: Yes (Other)
  Sender: COOPERSURGICAL
  Company Number: US-COOPERSURGICAL, INC.-2024CPS002894

PATIENT
  Age: 39 Year
  Sex: Female
  Weight: 99.773 kg

DRUGS (24)
  1. PARAGARD T 380A [Suspect]
     Active Substance: COPPER
     Indication: Contraception
     Dosage: UNK
     Route: 015
     Dates: start: 20161115
  2. UNSPECIFIED INGREDIENT [Concomitant]
     Active Substance: UNSPECIFIED INGREDIENT
     Dosage: 400 MG, 1X/DAY
     Route: 048
  3. COREG [Concomitant]
     Active Substance: CARVEDILOL
     Dosage: 1 TABLETS, 2X/DAY
     Route: 048
     Dates: start: 20240513
  4. VITAMIN D3 [Concomitant]
     Active Substance: CHOLECALCIFEROL
     Dosage: 2000 IU, 1X/DAY
     Route: 048
     Dates: start: 20240212
  5. CYMBALTA [Concomitant]
     Active Substance: DULOXETINE HYDROCHLORIDE
     Dosage: 1 CAPSULES, 2X/DAY
     Route: 048
     Dates: start: 20240910
  6. ENTRESTO [Concomitant]
     Active Substance: SACUBITRIL\VALSARTAN
     Dosage: 1 TABLETS, 2X/DAY
     Route: 048
     Dates: start: 20220731
  7. SYNTHROID [Concomitant]
     Active Substance: LEVOTHYROXINE SODIUM
     Dosage: 25 MCG
     Route: 048
     Dates: start: 20240212
  8. XYZAL [Concomitant]
     Active Substance: LEVOCETIRIZINE DIHYDROCHLORIDE
     Dosage: 5 MG, 1X/DAY
     Route: 048
     Dates: start: 20240926
  9. METFORMIN [Concomitant]
     Active Substance: METFORMIN HYDROCHLORIDE
     Dosage: 500 MG, 2X/DAY
     Route: 048
  10. OZEMPIC [Concomitant]
     Active Substance: SEMAGLUTIDE
     Dosage: UNK
     Route: 058
     Dates: start: 20240701
  11. OZEMPIC [Concomitant]
     Active Substance: SEMAGLUTIDE
     Dosage: UNK
     Route: 058
     Dates: start: 20240925
  12. ALDACTONE [Concomitant]
     Active Substance: SPIRONOLACTONE
     Dosage: 1 TABLETS
     Route: 048
     Dates: start: 20240212
  13. ASPIRIN [Concomitant]
     Active Substance: ASPIRIN
     Dosage: 81 MG, 1X/DAY
     Route: 048
     Dates: start: 20240212
  14. LIPITOR [Concomitant]
     Active Substance: ATORVASTATIN CALCIUM
     Dosage: 40 MG, 1X/DAY
     Route: 048
     Dates: start: 20240108
  15. VOLTAREN [Concomitant]
     Active Substance: DICLOFENAC SODIUM
     Dosage: 1 DOSAGE UNITS, 4X/DAY
     Route: 061
     Dates: start: 20220303
  16. FLONASE [Concomitant]
     Active Substance: FLUTICASONE PROPIONATE
     Dosage: 1 DOSAGE UNITS, 1X/DAY
     Route: 045
     Dates: start: 20231024
  17. LASIX [Concomitant]
     Active Substance: FUROSEMIDE
     Dosage: 40 MG, 1X/DAY
     Route: 048
     Dates: start: 20221219
  18. LANTUS SOLOSTAR [Concomitant]
     Active Substance: INSULIN GLARGINE
     Dosage: 0.3 ML, 1X/DAY
     Route: 058
     Dates: start: 20240424
  19. ATROVENT [Concomitant]
     Active Substance: IPRATROPIUM BROMIDE
     Dosage: 2 DOSAGE UNITS, 3X/DAY
     Route: 045
     Dates: start: 20220913
  20. CLARITIN [Concomitant]
     Active Substance: LORATADINE
     Dosage: 1 TABLETS, AS NEEDED
     Route: 048
     Dates: start: 20170502
  21. TOPROL XL [Concomitant]
     Active Substance: METOPROLOL SUCCINATE
     Dosage: UNK
     Dates: start: 20240405
  22. SINGULAIR [Concomitant]
     Active Substance: MONTELUKAST SODIUM
     Dosage: 1 TABLETS, AS NEEDED
     Route: 048
     Dates: start: 20191211
  23. NITROSTAT [Concomitant]
     Active Substance: NITROGLYCERIN
     Indication: Chest pain
     Dosage: UNK, AS NEEDED
     Route: 060
     Dates: start: 20210212
  24. ERGOCALCIFEROL [Concomitant]
     Active Substance: ERGOCALCIFEROL
     Dosage: 50000 IU, 1X/WEEK
     Route: 048

REACTIONS (9)
  - Implantable defibrillator insertion [Unknown]
  - Device breakage [Not Recovered/Not Resolved]
  - Foreign body in reproductive tract [Not Recovered/Not Resolved]
  - Complication of device removal [Not Recovered/Not Resolved]
  - Menstruation irregular [Unknown]
  - Pain [Unknown]
  - Device dislocation [Not Recovered/Not Resolved]
  - Abnormal uterine bleeding [Unknown]
  - Dysmenorrhoea [Unknown]

NARRATIVE: CASE EVENT DATE: 20210107
